FAERS Safety Report 5316910-7 (Version None)
Quarter: 2007Q2

REPORT INFORMATION
  Report Type: 
  Country: None (occurrence: None)
  Receive Date: 20070504
  Receipt Date: 20070427
  Transmission Date: 20071010
  Serious: Yes (Other)
  Sender: FDA-Public Use
  Company Number: TH-GLAXOSMITHKLINE-B0469011A

PATIENT
  Age: 7 Year
  Sex: Female
  Weight: 18 kg

DRUGS (9)
  1. AZT [Suspect]
     Indication: HIV INFECTION
     Dosage: 200MG TWICE PER DAY
     Route: 048
     Dates: start: 20070207
  2. LAMIVUDINE [Suspect]
     Indication: HIV INFECTION
     Dosage: 225MG PER DAY
     Route: 048
     Dates: start: 20070207
  3. NEVIRAPINE [Suspect]
     Indication: HIV INFECTION
     Dosage: 300MG PER DAY
     Route: 048
     Dates: start: 20070207
  4. CEFOTAXIME [Concomitant]
  5. AMIKACIN [Concomitant]
  6. AMBROXOL [Concomitant]
  7. PARACETAMOL [Concomitant]
  8. AMOXICILLIN [Concomitant]
  9. AMOXICLAV [Concomitant]

REACTIONS (4)
  - COUGH [None]
  - NEUTROPENIA [None]
  - PNEUMONIA [None]
  - PYREXIA [None]
